FAERS Safety Report 7051780-0 (Version None)
Quarter: 2010Q4

REPORT INFORMATION
  Report Type: 
  Country: None (occurrence: None)
  Receive Date: 20101012
  Receipt Date: 20100926
  Transmission Date: 20110411
  Serious: Yes (Hospitalization)
  Sender: FDA-Public Use
  Company Number: TRP_03719_2010

PATIENT
  Sex: Female
  Weight: 82.6 kg

DRUGS (13)
  1. INFERGEN [Suspect]
     Indication: HEPATITIS C
     Dosage: (DF)
     Dates: start: 20100501, end: 20100727
  2. RIBAVARIN [Suspect]
     Indication: HEPATITIS C
     Dosage: (DF)
     Dates: start: 20100501, end: 20100727
  3. SYMBICORT [Concomitant]
  4. KLONOPIN [Concomitant]
  5. FISH OIL [Concomitant]
  6. ALBUTEROL [Concomitant]
  7. SYNTHROID [Concomitant]
  8. SINGULAIR [Concomitant]
  9. MULTI-VITAMINS [Concomitant]
  10. PROTONIX [Concomitant]
  11. ZOLOFT [Concomitant]
  12. DESYREL [Concomitant]
  13. VITAMIN E /00110501/ [Concomitant]

REACTIONS (7)
  - BLOOD GLUCOSE INCREASED [None]
  - CHRONIC OBSTRUCTIVE PULMONARY DISEASE [None]
  - HYPONATRAEMIA [None]
  - MIGRAINE [None]
  - PERICARDIAL EFFUSION [None]
  - PERICARDITIS [None]
  - THERAPEUTIC RESPONSE DECREASED [None]
